FAERS Safety Report 23691593 (Version 5)
Quarter: 2025Q1

REPORT INFORMATION
  Report Type: Spontaneous
  Country: JP (occurrence: JP)
  Receive Date: 20240401
  Receipt Date: 20250220
  Transmission Date: 20250409
  Serious: Yes (Hospitalization, Other)
  Sender: ASTELLAS
  Company Number: JP-ASTELLAS-2024JP002105

PATIENT
  Age: 68 Year
  Sex: Male
  Weight: 82 kg

DRUGS (30)
  1. PADCEV [Suspect]
     Active Substance: ENFORTUMAB VEDOTIN-EJFV
     Indication: Transitional cell carcinoma
     Route: 042
     Dates: start: 20240305, end: 20240312
  2. PADCEV [Suspect]
     Active Substance: ENFORTUMAB VEDOTIN-EJFV
     Indication: Malignant neoplasm of renal pelvis
  3. PADCEV [Suspect]
     Active Substance: ENFORTUMAB VEDOTIN-EJFV
     Indication: Malignant neoplasm progression
  4. CISPLATIN [Concomitant]
     Active Substance: CISPLATIN
     Indication: Malignant neoplasm of renal pelvis
     Route: 065
  5. GEMCITABINE [Concomitant]
     Active Substance: GEMCITABINE
     Indication: Malignant neoplasm of renal pelvis
     Route: 065
  6. Ramelteon tablet [Concomitant]
     Indication: Insomnia
     Route: 048
     Dates: start: 20230612
  7. TRAZODONE HYDROCHLORIDE [Concomitant]
     Active Substance: TRAZODONE HYDROCHLORIDE
     Indication: Insomnia
     Route: 048
     Dates: start: 20230721
  8. Dayvigo tablet [Concomitant]
     Indication: Insomnia
     Route: 048
     Dates: start: 20230802
  9. METHYLCOBALAMIN [Concomitant]
     Active Substance: METHYLCOBALAMIN
     Indication: Vitamin B12 deficiency
     Route: 048
     Dates: start: 20240123
  10. Myser Ointment 0.05% [Concomitant]
     Indication: Rash
     Route: 065
     Dates: start: 20240306, end: 20240318
  11. Myser Ointment 0.05% [Concomitant]
     Indication: Pruritus
  12. LOXOPROFEN SODIUM [Concomitant]
     Active Substance: LOXOPROFEN SODIUM
     Indication: Pyrexia
     Route: 048
     Dates: start: 20240310, end: 20240325
  13. LOXOPROFEN SODIUM [Concomitant]
     Active Substance: LOXOPROFEN SODIUM
     Indication: Pain
  14. FEXOFENADINE HYDROCHLORIDE [Concomitant]
     Active Substance: FEXOFENADINE HYDROCHLORIDE
     Indication: Rash
     Dosage: AFTER BREAKFAST AND DINNER
     Route: 048
     Dates: start: 20240313, end: 20240317
  15. FEXOFENADINE HYDROCHLORIDE [Concomitant]
     Active Substance: FEXOFENADINE HYDROCHLORIDE
     Indication: Pruritus
  16. AVELUMAB [Concomitant]
     Active Substance: AVELUMAB
     Indication: Malignant neoplasm of renal pelvis
     Route: 065
  17. Dermovate ointment 0.05% [Concomitant]
     Indication: Erythema
     Route: 062
     Dates: start: 20240318, end: 20240321
  18. Dermovate ointment 0.05% [Concomitant]
     Indication: Rash
  19. Dermovate ointment 0.05% [Concomitant]
     Indication: Pruritus
  20. Heparinoid oil-based cream [Concomitant]
     Indication: Erythema
     Route: 062
     Dates: start: 20240318
  21. Heparinoid oil-based cream [Concomitant]
     Indication: Rash
  22. Heparinoid oil-based cream [Concomitant]
     Indication: Pruritus
  23. Water-soluble predonine [Concomitant]
     Indication: Drug eruption
     Dosage: + SALINE SOLUTION 50ML AT 100ML/H
     Route: 042
     Dates: start: 20240319
  24. Water-soluble predonine [Concomitant]
     Dosage: + SALINE SOLUTION 50ML AT 100ML/H
     Route: 042
     Dates: start: 20240322
  25. Water-soluble predonine [Concomitant]
     Dosage: + SALINE SOLUTION 50ML AT 100ML/H
     Route: 042
     Dates: start: 20240326, end: 20240329
  26. Calonal tablet 200 [Concomitant]
     Indication: Pain
     Route: 048
     Dates: start: 20240319
  27. Acelio for intravenous injection 1000mg bag [Concomitant]
     Indication: Pain
     Route: 042
     Dates: start: 20240322
  28. Geben cream [Concomitant]
     Indication: Skin erosion
     Route: 062
     Dates: start: 20240321
  29. Geben cream [Concomitant]
     Indication: Skin ulcer
     Route: 062
     Dates: start: 20240322
  30. Geben cream [Concomitant]
     Route: 062
     Dates: start: 20240326

REACTIONS (10)
  - Skin ulcer [Recovering/Resolving]
  - Pain of skin [Recovered/Resolved]
  - Drug eruption [Recovering/Resolving]
  - Dermatitis bullous [Recovered/Resolved]
  - Skin exfoliation [Recovering/Resolving]
  - Erythema [Recovered/Resolved]
  - Pruritus [Recovering/Resolving]
  - Pyrexia [Recovered/Resolved]
  - Rash [Recovering/Resolving]
  - Taste disorder [Recovered/Resolved]

NARRATIVE: CASE EVENT DATE: 20240306
